FAERS Safety Report 5383321-8 (Version None)
Quarter: 2007Q3

REPORT INFORMATION
  Report Type: 
  Country: None (occurrence: None)
  Receive Date: 20070710
  Receipt Date: 20070628
  Transmission Date: 20080115
  Serious: Yes (Life-Threatening, Hospitalization, Disabling)
  Sender: FDA-Public Use
  Company Number: HQWYE868108NOV06

PATIENT
  Sex: Female

DRUGS (2)
  1. CORDARONE [Suspect]
     Indication: SUPRAVENTRICULAR TACHYCARDIA
     Dosage: 150 MG DILUTED IN 5% GLUCOSE SOLUTION TO BE GIVEN OVER 20 MIN
     Route: 042
     Dates: start: 20061005, end: 20061005
  2. PROPAFENONE HCL [Concomitant]
     Indication: SUPRAVENTRICULAR TACHYCARDIA
     Dosage: 70 MG IV INJECTION FOLLOWED BY TWO 35 MG IV INJECTIONS
     Route: 042
     Dates: start: 20061004, end: 20061004

REACTIONS (2)
  - ANAPHYLACTIC SHOCK [None]
  - ANOXIC ENCEPHALOPATHY [None]
